FAERS Safety Report 11989212 (Version 2)
Quarter: 2016Q1

REPORT INFORMATION
  Report Type: Report from Study
  Country: DE (occurrence: DE)
  Receive Date: 20160202
  Receipt Date: 20160308
  Transmission Date: 20160526
  Serious: Yes (Hospitalization)
  Sender: FDA-Public Use
  Company Number: DE-SA-2016SA016459

PATIENT
  Age: 32 Year
  Sex: Female

DRUGS (5)
  1. TRAMADOLOR [Concomitant]
     Active Substance: TRAMADOL
     Dosage: 2X1
     Route: 048
     Dates: start: 20160118, end: 20160120
  2. PARACETAMOL [Concomitant]
     Active Substance: ACETAMINOPHEN
     Dosage: 4X1
     Route: 048
     Dates: start: 20160118, end: 20160125
  3. CAPVAL [Concomitant]
     Active Substance: NOSCAPINE
     Dosage: 1X1
     Route: 048
     Dates: start: 20160118, end: 20160125
  4. LEMTRADA [Suspect]
     Active Substance: ALEMTUZUMAB
     Indication: MULTIPLE SCLEROSIS
     Route: 041
  5. PANTOPRAZOL [Concomitant]
     Active Substance: PANTOPRAZOLE SODIUM
     Dosage: 2X1
     Route: 048
     Dates: start: 20160118, end: 20160125

REACTIONS (1)
  - Cholecystitis [Recovered/Resolved]

NARRATIVE: CASE EVENT DATE: 20160118
